FAERS Safety Report 10239973 (Version 2)
Quarter: 2014Q3

REPORT INFORMATION
  Report Type: Spontaneous
  Country: US (occurrence: US)
  Receive Date: 20140616
  Receipt Date: 20140717
  Transmission Date: 20150326
  Serious: No
  Sender: FDA-Public Use
  Company Number: US-009507513-1406USA005797

PATIENT
  Age: 19 Year
  Sex: Female
  Weight: 136.5 kg

DRUGS (2)
  1. NEXPLANON [Suspect]
     Active Substance: ETONOGESTREL
     Indication: CONTRACEPTION
     Dosage: SINGLE ROD, LEFT ARM, EVERY THREE YEARS
     Route: 059
     Dates: start: 20140325, end: 20140625
  2. NEXPLANON [Suspect]
     Active Substance: ETONOGESTREL
     Dosage: SINGLE ROD, EVERY THREE YEARS
     Route: 059

REACTIONS (1)
  - Device breakage [Recovered/Resolved]

NARRATIVE: CASE EVENT DATE: 20140610
